FAERS Safety Report 14615336 (Version 1)
Quarter: 2018Q1

REPORT INFORMATION
  Report Type: Spontaneous
  Country: US (occurrence: US)
  Receive Date: 20180308
  Receipt Date: 20180308
  Transmission Date: 20180509
  Serious: No
  Sender: FDA-Public Use
  Company Number: US-ASTRAZENECA-2018SE17945

PATIENT
  Sex: Female

DRUGS (2)
  1. FASENRA [Suspect]
     Active Substance: BENRALIZUMAB
     Indication: ASTHMA
     Dosage: 30 MG, UNKNOWN
     Route: 058
  2. FASENRA [Suspect]
     Active Substance: BENRALIZUMAB
     Indication: CONDITION AGGRAVATED
     Dosage: 30 MG, UNKNOWN
     Route: 058

REACTIONS (4)
  - Drug dose omission [Unknown]
  - Off label use [Unknown]
  - Product use in unapproved indication [Unknown]
  - Asthma [Unknown]
